FAERS Safety Report 5252905-X (Version None)
Quarter: 2007Q1

REPORT INFORMATION
  Report Type: 
  Country: None (occurrence: None)
  Receive Date: 20070301
  Receipt Date: 20070226
  Transmission Date: 20070707
  Serious: Yes (Hospitalization)
  Sender: FDA-Public Use
  Company Number: PHRM2007FR00649

PATIENT
  Age: 46 Year
  Sex: Female
  Weight: 118 kg

DRUGS (8)
  1. DIPROSONE [Suspect]
     Dosage: 1 DF, QD
     Route: 061
     Dates: start: 20061113, end: 20061120
  2. NOCERTONE [Suspect]
     Indication: MIGRAINE
     Dosage: 60 MG, BID
     Route: 048
     Dates: end: 20061219
  3. PROPOFAN ^AVENTIS^ [Suspect]
     Indication: MIGRAINE
     Route: 048
     Dates: start: 20061020, end: 20061207
  4. CERAZETTE [Suspect]
     Indication: CONTRACEPTION
     Dosage: 0.075 MG, QD
     Route: 048
     Dates: start: 20061026, end: 20061219
  5. CERAZETTE [Suspect]
     Dates: start: 20061201
  6. ECONAZOLE NITRATE [Suspect]
     Dosage: 1 DF, QD
     Route: 061
     Dates: start: 20061107, end: 20061128
  7. AMYCOR [Concomitant]
     Indication: INTERTRIGO
     Route: 061
     Dates: start: 20061204, end: 20061207
  8. LAMISIL [Suspect]
     Dosage: 250 MG, QD
     Route: 048
     Dates: start: 20061107, end: 20061123

REACTIONS (11)
  - ANTINUCLEAR ANTIBODY POSITIVE [None]
  - BURNING SENSATION [None]
  - C-REACTIVE PROTEIN INCREASED [None]
  - ERYTHEMA [None]
  - INTERTRIGO [None]
  - NEUTROPHIL COUNT INCREASED [None]
  - OEDEMA [None]
  - PUSTULAR PSORIASIS [None]
  - RASH PUSTULAR [None]
  - SKIN LESION [None]
  - WHITE BLOOD CELL COUNT INCREASED [None]
